FAERS Safety Report 25401974 (Version 1)
Quarter: 2025Q2

REPORT INFORMATION
  Report Type: Spontaneous
  Country: ES (occurrence: ES)
  Receive Date: 20250605
  Receipt Date: 20250605
  Transmission Date: 20250717
  Serious: Yes (Other)
  Sender: MYLAN
  Company Number: ES-ISDIN-2025001688

PATIENT
  Age: 12 Year
  Sex: Male
  Weight: 54 kg

DRUGS (4)
  1. ISOTRETINOIN [Suspect]
     Active Substance: ISOTRETINOIN
     Indication: Acne
     Dates: start: 20231106, end: 20241031
  2. ISOTRETINOIN [Suspect]
     Active Substance: ISOTRETINOIN
     Route: 048
     Dates: start: 20231106, end: 20241031
  3. ISOTRETINOIN [Suspect]
     Active Substance: ISOTRETINOIN
     Route: 048
     Dates: start: 20231106, end: 20241031
  4. ISOTRETINOIN [Suspect]
     Active Substance: ISOTRETINOIN
     Dates: start: 20231106, end: 20241031

REACTIONS (1)
  - Carbohydrate metabolism disorder [Recovered/Resolved]

NARRATIVE: CASE EVENT DATE: 20240604
